FAERS Safety Report 17651423 (Version 1)
Quarter: 2020Q2

REPORT INFORMATION
  Report Type: Spontaneous
  Country: US (occurrence: US)
  Receive Date: 20200409
  Receipt Date: 20200409
  Transmission Date: 20200713
  Serious: No
  Sender: FDA-Public Use
  Company Number: None

PATIENT
  Age: 78 Year
  Sex: Female
  Weight: 58 kg

DRUGS (7)
  1. DIPHENHYDRAMINE. [Concomitant]
     Active Substance: DIPHENHYDRAMINE
     Dates: start: 20200323
  2. FAMOTIDINE. [Concomitant]
     Active Substance: FAMOTIDINE
     Dates: start: 20200406
  3. PALONOSETRON. [Concomitant]
     Active Substance: PALONOSETRON HYDROCHLORIDE
     Dates: start: 20200323
  4. MONTELUKAST [Concomitant]
     Active Substance: MONTELUKAST SODIUM
     Dates: start: 20200406
  5. OXALIPLATIN. [Suspect]
     Active Substance: OXALIPLATIN
     Indication: COLON CANCER
     Dosage: ?          OTHER FREQUENCY:EVERY 14 DAYS;?
     Route: 042
     Dates: start: 20200306, end: 20200406
  6. APREPITANT. [Concomitant]
     Active Substance: APREPITANT
     Dates: start: 20200323
  7. DEXAMETHASONE. [Concomitant]
     Active Substance: DEXAMETHASONE
     Dates: start: 20200323

REACTIONS (2)
  - Flushing [None]
  - Pruritus [None]

NARRATIVE: CASE EVENT DATE: 20200406
